FAERS Safety Report 11261249 (Version 1)
Quarter: 2015Q3

REPORT INFORMATION
  Report Type: Spontaneous
  Country: US (occurrence: US)
  Receive Date: 20150710
  Receipt Date: 20150710
  Transmission Date: 20151125
  Serious: No
  Sender: FDA-Public Use
  Company Number: US-PURDUE-USA-2015-0120659

PATIENT
  Age: 47 Year
  Sex: Male
  Weight: 81.63 kg

DRUGS (1)
  1. BUTRANS [Suspect]
     Active Substance: BUPRENORPHINE
     Indication: PAIN
     Dosage: 15 MCG/HR, WEEKLY
     Route: 062
     Dates: start: 20141128, end: 20150101

REACTIONS (2)
  - Hypersensitivity [Unknown]
  - Application site burn [Recovering/Resolving]

NARRATIVE: CASE EVENT DATE: 20141215
